FAERS Safety Report 9925115 (Version 1)
Quarter: 2014Q1

REPORT INFORMATION
  Report Type: Spontaneous
  Country: US (occurrence: None)
  Receive Date: 20140225
  Receipt Date: 20140225
  Transmission Date: 20141002
  Serious: Yes (Other)
  Sender: FDA-Public Use
  Company Number: None

PATIENT
  Age: 15 Year
  Sex: Female

DRUGS (1)
  1. ROBINUL [Suspect]

REACTIONS (5)
  - Dizziness [None]
  - Abasia [None]
  - Blindness [None]
  - Abdominal pain upper [None]
  - Fall [None]
